FAERS Safety Report 13195329 (Version 1)
Quarter: 2017Q1

REPORT INFORMATION
  Report Type: Spontaneous
  Country: US (occurrence: US)
  Receive Date: 20170207
  Receipt Date: 20170207
  Transmission Date: 20170428
  Serious: Yes (Hospitalization)
  Sender: FDA-Public Use
  Company Number: None

PATIENT
  Age: 56 Year
  Sex: Female
  Weight: 58.51 kg

DRUGS (5)
  1. DOXORUBICIN HYDROCHLORIDE. [Suspect]
     Active Substance: DOXORUBICIN HYDROCHLORIDE
     Dates: end: 20150210
  2. RITUXIMAB (MOAB C2B8 ANTI CD20, CHIMERIC) [Suspect]
     Active Substance: RITUXIMAB
     Dates: end: 20150210
  3. CYCLOPHOSPHAMIDE. [Suspect]
     Active Substance: CYCLOPHOSPHAMIDE
     Dates: end: 20150210
  4. PREDNISONE. [Suspect]
     Active Substance: PREDNISONE
     Dates: end: 20150210
  5. VINCRISTINE SULFATE. [Suspect]
     Active Substance: VINCRISTINE SULFATE
     Dates: end: 20150210

REACTIONS (9)
  - Candida infection [None]
  - Pneumothorax [None]
  - Sepsis [None]
  - Empyema [None]
  - Condition aggravated [None]
  - Pericardial effusion [None]
  - Staphylococcus test positive [None]
  - Gastropleural fistula [None]
  - Febrile neutropenia [None]

NARRATIVE: CASE EVENT DATE: 20150223
